FAERS Safety Report 24871109 (Version 1)
Quarter: 2025Q1

REPORT INFORMATION
  Report Type: Spontaneous
  Country: GB (occurrence: GB)
  Receive Date: 20250122
  Receipt Date: 20250122
  Transmission Date: 20250409
  Serious: Yes (Other)
  Sender: TEVA
  Company Number: None

PATIENT
  Age: 45 Year
  Sex: Female
  Weight: 55 kg

DRUGS (1)
  1. FLUCONAZOLE [Suspect]
     Active Substance: FLUCONAZOLE
     Indication: Vulvovaginal candidiasis
     Route: 065
     Dates: start: 20241216, end: 20241216

REACTIONS (5)
  - Skin exfoliation [Unknown]
  - Erythema [Not Recovered/Not Resolved]
  - Skin warm [Unknown]
  - Paraesthesia [Unknown]
  - Pain of skin [Unknown]

NARRATIVE: CASE EVENT DATE: 20241216
